FAERS Safety Report 8887386 (Version 1)
Quarter: 2012Q4

REPORT INFORMATION
  Report Type: 
  Country: US (occurrence: US)
  Receive Date: 20121101
  Receipt Date: 20121101
  Transmission Date: 20130627
  Serious: Yes (Other)
  Sender: FDA-Public Use
  Company Number: CHPA2012US022592

PATIENT
  Sex: Male

DRUGS (1)
  1. THERAFLU SUGAR FREE NIGHTIME SEVERE COLD AND COUGH [Suspect]
     Indication: INFLUENZA
     Dosage: Unk, Unk
     Route: 048
     Dates: start: 2006, end: 2008

REACTIONS (2)
  - Diabetes mellitus [Not Recovered/Not Resolved]
  - Off label use [Unknown]
